FAERS Safety Report 9571870 (Version 1)
Quarter: 2013Q4

REPORT INFORMATION
  Report Type: Spontaneous
  Country: US (occurrence: US)
  Receive Date: 20131001
  Receipt Date: 20131001
  Transmission Date: 20140711
  Serious: No
  Sender: FDA-Public Use
  Company Number: US-B.I. PHARMACEUTICALS,INC./RIDGEFIELD-2013-BI-30532BP

PATIENT
  Age: 81 Year
  Sex: Female

DRUGS (2)
  1. SPIRIVA [Suspect]
     Indication: CHRONIC OBSTRUCTIVE PULMONARY DISEASE
     Dosage: 18 MCG
     Route: 048
     Dates: start: 201308, end: 20130923
  2. ARMOUR THYROID [Concomitant]
     Indication: THYROID DISORDER
     Route: 048

REACTIONS (7)
  - Lip swelling [Not Recovered/Not Resolved]
  - Lip pain [Not Recovered/Not Resolved]
  - Pruritus [Recovered/Resolved]
  - Lip discolouration [Not Recovered/Not Resolved]
  - Myalgia [Recovered/Resolved]
  - Painful respiration [Recovered/Resolved]
  - Pulmonary function test [Unknown]
